FAERS Safety Report 20532757 (Version 1)
Quarter: 2022Q1

REPORT INFORMATION
  Report Type: Spontaneous
  Country: CN (occurrence: CN)
  Receive Date: 20220301
  Receipt Date: 20220301
  Transmission Date: 20220423
  Serious: Yes (Other)
  Sender: FDA-Public Use
  Company Number: CN-PFIZER INC-202200308153

PATIENT
  Age: 2 Year
  Sex: Male
  Weight: 13 kg

DRUGS (2)
  1. CYTARABINE [Suspect]
     Active Substance: CYTARABINE
     Indication: Acute lymphocytic leukaemia
     Dosage: 0.1 G, 1X/DAY
     Route: 041
     Dates: start: 20220204, end: 20220216
  2. DEXTROSE [Concomitant]
     Active Substance: DEXTROSE
     Indication: Vehicle solution use
     Dosage: 250 ML, 1X/DAY
     Route: 041
     Dates: start: 20220204, end: 20220216

REACTIONS (3)
  - Hepatic function abnormal [Unknown]
  - Transaminases increased [Unknown]
  - Total bile acids increased [Unknown]

NARRATIVE: CASE EVENT DATE: 20220216
